FAERS Safety Report 6751418-3 (Version None)
Quarter: 2010Q2

REPORT INFORMATION
  Report Type: 
  Country: None (occurrence: None)
  Receive Date: 20100526
  Receipt Date: 20100304
  Transmission Date: 20101027
  Serious: No
  Sender: FDA-Public Use
  Company Number: 305247

PATIENT
  Sex: Female

DRUGS (2)
  1. VICTOZA [Suspect]
     Dosage: 0.6 MG, QD, SUBCUTANEAOUS; 1.8 MG, QD, SUBCUTANEOUS
     Route: 058
     Dates: start: 20100225
  2. METFORMIN HCL [Concomitant]

REACTIONS (3)
  - BURNING SENSATION [None]
  - DYSGEUSIA [None]
  - PAIN IN EXTREMITY [None]
